FAERS Safety Report 10169714 (Version 1)
Quarter: 2014Q2

REPORT INFORMATION
  Report Type: Spontaneous
  Country: US (occurrence: CA)
  Receive Date: 20140513
  Receipt Date: 20140513
  Transmission Date: 20141212
  Serious: Yes (Other)
  Sender: FDA-Public Use
  Company Number: CA-FRI-1000067258

PATIENT
  Sex: Female

DRUGS (2)
  1. SAPHRIS [Suspect]
     Indication: SCHIZOPHRENIA
     Route: 060
  2. SAPHRIS [Suspect]
     Indication: SCHIZOAFFECTIVE DISORDER

REACTIONS (3)
  - Oedema [Unknown]
  - Oedema peripheral [Unknown]
  - Hypersensitivity [Unknown]
